FAERS Safety Report 8251157-6 (Version None)
Quarter: 2012Q2

REPORT INFORMATION
  Report Type: 
  Country: None (occurrence: None)
  Receive Date: 20120402
  Receipt Date: 20120322
  Transmission Date: 20120825
  Serious: Yes (Hospitalization)
  Sender: FDA-Public Use
  Company Number: CG-MERCK-1203USA03386

PATIENT
  Age: 23 Year
  Sex: Male
  Weight: 49 kg

DRUGS (1)
  1. STROMECTOL [Suspect]
     Route: 065
     Dates: start: 20111222, end: 20111222

REACTIONS (7)
  - BLOOD PRESSURE ABNORMAL [None]
  - MALARIA [None]
  - CONJUNCTIVAL HAEMORRHAGE [None]
  - LOSS OF CONSCIOUSNESS [None]
  - DECUBITUS ULCER [None]
  - PYREXIA [None]
  - ENCEPHALOPATHY [None]
